FAERS Safety Report 14329436 (Version 2)
Quarter: 2018Q1

REPORT INFORMATION
  Report Type: Spontaneous
  Country: SG (occurrence: SG)
  Receive Date: 20171227
  Receipt Date: 20180105
  Transmission Date: 20180509
  Serious: Yes (Other)
  Sender: FDA-Public Use
  Company Number: SG-TEVA-2017-SG-836032

PATIENT
  Age: 53 Year
  Sex: Male

DRUGS (2)
  1. PREDNISOLONE. [Suspect]
     Active Substance: PREDNISOLONE
     Indication: POLYMYOSITIS
     Route: 065
  2. MYCOPHENOLATE MOFETIL. [Suspect]
     Active Substance: MYCOPHENOLATE MOFETIL
     Indication: POLYMYOSITIS
     Route: 065

REACTIONS (6)
  - Anal abscess [Unknown]
  - Cranial nerve palsies multiple [Unknown]
  - Angiocentric lymphoma [Unknown]
  - Diplopia [Unknown]
  - Epstein-Barr virus infection [Unknown]
  - Pulmonary mass [Unknown]
